FAERS Safety Report 6603686-6 (Version None)
Quarter: 2010Q1

REPORT INFORMATION
  Report Type: 
  Country: None (occurrence: None)
  Receive Date: 20100226
  Receipt Date: 20100218
  Transmission Date: 20100710
  Serious: Yes (Death, Life-Threatening)
  Sender: FDA-Public Use
  Company Number: US-BAXTER-2009BH019471

PATIENT
  Age: 87 Year
  Sex: Male

DRUGS (15)
  1. HEPARIN SODIUM INJECTION [Suspect]
     Indication: DRUG USE FOR UNKNOWN INDICATION
     Route: 042
     Dates: start: 20071223, end: 20071201
  2. DISOPYRAMIDE PHOSPHATE [Concomitant]
     Indication: DRUG USE FOR UNKNOWN INDICATION
     Route: 065
  3. CORGARD [Concomitant]
     Indication: DRUG USE FOR UNKNOWN INDICATION
     Route: 065
  4. LIPITOR [Concomitant]
     Indication: DRUG USE FOR UNKNOWN INDICATION
     Route: 065
  5. SODIUM CHLORIDE 0.9% IN PLASTIC CONTAINER [Concomitant]
     Indication: DRUG USE FOR UNKNOWN INDICATION
     Route: 065
  6. GASTROGRAFIN [Concomitant]
     Indication: DRUG USE FOR UNKNOWN INDICATION
     Route: 065
  7. PHENYLEPHRINE [Concomitant]
     Indication: DRUG USE FOR UNKNOWN INDICATION
     Route: 065
  8. ZOLOFT [Concomitant]
     Indication: DRUG USE FOR UNKNOWN INDICATION
     Route: 065
  9. NEXIUM                                  /UNK/ [Concomitant]
     Indication: DRUG USE FOR UNKNOWN INDICATION
     Route: 065
  10. PROPOXYPHENE NAPSYLATE [Concomitant]
     Indication: PAIN
     Route: 065
  11. PANTOPRAZOLE SODIUM [Concomitant]
     Indication: DRUG USE FOR UNKNOWN INDICATION
     Route: 065
  12. SODIUM BICARBONATE [Concomitant]
     Indication: DRUG USE FOR UNKNOWN INDICATION
     Route: 065
  13. DEXTROSE [Concomitant]
     Indication: DRUG USE FOR UNKNOWN INDICATION
     Route: 065
  14. MORPHINE SULFATE [Concomitant]
     Indication: DRUG USE FOR UNKNOWN INDICATION
     Route: 065
  15. POTASSIUM CHLORIDE [Concomitant]
     Indication: DRUG USE FOR UNKNOWN INDICATION
     Route: 065

REACTIONS (10)
  - ANAEMIA [None]
  - BLOOD PRESSURE DECREASED [None]
  - CAROTID ARTERY STENOSIS [None]
  - CEREBROVASCULAR ACCIDENT [None]
  - CONFUSIONAL STATE [None]
  - GENERAL PHYSICAL HEALTH DETERIORATION [None]
  - HYPOVOLAEMIA [None]
  - MUSCLE HAEMORRHAGE [None]
  - SHOCK [None]
  - UNRESPONSIVE TO STIMULI [None]
